FAERS Safety Report 8073257-6 (Version None)
Quarter: 2011Q4

REPORT INFORMATION
  Report Type: 
  Country: None (occurrence: None)
  Receive Date: 20111221
  Receipt Date: 20110509
  Transmission Date: 20120403
  Serious: Yes (Other)
  Sender: FDA-Public Use
  Company Number: PHHY2011US24844

PATIENT
  Age: 72 Year
  Sex: Female

DRUGS (1)
  1. EXJADE [Suspect]
     Dosage: 1500 MG, QD, ORAL
     Route: 048

REACTIONS (7)
  - VOMITING [None]
  - DYSGEUSIA [None]
  - RENAL FAILURE [None]
  - LETHARGY [None]
  - DECREASED APPETITE [None]
  - ABDOMINAL PAIN UPPER [None]
  - ASTHENIA [None]
